FAERS Safety Report 5427033-0 (Version None)
Quarter: 2007Q3

REPORT INFORMATION
  Report Type: 
  Country: None (occurrence: None)
  Receive Date: 20070824
  Receipt Date: 20070824
  Transmission Date: 20080115
  Serious: Yes (Hospitalization)
  Sender: FDA-Public Use
  Company Number: None

PATIENT
  Sex: Male
  Weight: 84 kg

DRUGS (6)
  1. IRINOTECAN HCL [Suspect]
     Indication: GLIOBLASTOMA MULTIFORME
     Dosage: 325MG/M2 DAY 1,8,22,29 IV
     Route: 042
     Dates: start: 20070516
  2. IRINOTECAN HCL [Suspect]
     Indication: GLIOBLASTOMA MULTIFORME
     Dosage: 325MG/M2 DAY 1,8,22,29 IV
     Route: 042
     Dates: start: 20070523
  3. TEMODAR [Suspect]
     Indication: GLIOBLASTOMA MULTIFORME
     Dosage: 200MG/M2 DAYS 1-5 PO
     Route: 048
     Dates: start: 20070516, end: 20070520
  4. DEXAMETHASONE 0.5MG TAB [Concomitant]
  5. ZANTAC 150 [Concomitant]
  6. PHENOBARBITAL TAB [Concomitant]

REACTIONS (8)
  - BRAIN HERNIATION [None]
  - BRAIN OEDEMA [None]
  - DEPRESSED LEVEL OF CONSCIOUSNESS [None]
  - DIARRHOEA [None]
  - GLIOBLASTOMA MULTIFORME [None]
  - NAUSEA [None]
  - NEOPLASM PROGRESSION [None]
  - SOMNOLENCE [None]
